FAERS Safety Report 4292467-7 (Version None)
Quarter: 2004Q1

REPORT INFORMATION
  Report Type: 
  Country: None (occurrence: None)
  Receive Date: 20040126
  Receipt Date: 20031027
  Transmission Date: 20041129
  Serious: No
  Sender: FDA-Public Use
  Company Number: USA030842976

PATIENT
  Age: 72 Year
  Sex: Female
  Weight: 68 kg

DRUGS (6)
  1. FORTEO [Suspect]
     Indication: OSTEOPOROSIS
     Dosage: 20 UG/DAY
     Dates: start: 20030501, end: 20030816
  2. LOTREL [Concomitant]
  3. LIPITOR [Concomitant]
  4. INDAPAMIDE [Concomitant]
  5. CLONIDINE [Concomitant]
  6. NEURONTIN [Concomitant]

REACTIONS (1)
  - BLOOD CALCIUM INCREASED [None]
